FAERS Safety Report 4761604-X (Version None)
Quarter: 2005Q3

REPORT INFORMATION
  Report Type: 
  Country: None (occurrence: None)
  Receive Date: 20050906
  Receipt Date: 20050830
  Transmission Date: 20060218
  Serious: Yes (Hospitalization)
  Sender: FDA-Public Use
  Company Number: US-BRISTOL-MYERS SQUIBB COMPANY-13094933

PATIENT
  Age: 63 Year
  Sex: Male

DRUGS (13)
  1. CETUXIMAB [Suspect]
     Indication: NON-SMALL CELL LUNG CANCER
     Dosage: PER PROTOCOL-WEEKLY
     Route: 042
     Dates: start: 20050822, end: 20050822
  2. CARBOPLATIN [Suspect]
     Indication: NON-SMALL CELL LUNG CANCER
     Dosage: PER PROTOCOL GIVEN EVERY 3 WEEKS.
     Route: 042
     Dates: start: 20050816, end: 20050816
  3. TAXOTERE [Suspect]
     Indication: NON-SMALL CELL LUNG CANCER
     Dosage: PER PROTOCOL GIVEN EVERY 3 WEEKS.
     Route: 042
     Dates: start: 20050816, end: 20050816
  4. DURAGESIC-100 [Concomitant]
     Dates: start: 20050519
  5. K-DUR 10 [Concomitant]
     Dates: start: 20050824
  6. OXYCODONE HCL [Concomitant]
     Dates: start: 20050620
  7. MAG-OX [Concomitant]
     Dates: start: 20050824
  8. NEUPOGEN [Concomitant]
     Dates: start: 20050823, end: 20050825
  9. XANAX [Concomitant]
     Dates: start: 20050824
  10. MAXIPIME [Concomitant]
  11. VANCOMYCIN [Concomitant]
  12. PROTONIX [Concomitant]
  13. CIPROFLOXACIN HCL [Concomitant]
     Dates: start: 20050824

REACTIONS (5)
  - DEHYDRATION [None]
  - HYPOKALAEMIA [None]
  - HYPOMAGNESAEMIA [None]
  - HYPONATRAEMIA [None]
  - SMALL INTESTINAL OBSTRUCTION [None]
